FAERS Safety Report 14065587 (Version 2)
Quarter: 2017Q4

REPORT INFORMATION
  Report Type: Spontaneous
  Country: US (occurrence: US)
  Receive Date: 20171009
  Receipt Date: 20171013
  Transmission Date: 20180321
  Serious: Yes (Death, Hospitalization, Other)
  Sender: FDA-Public Use
  Company Number: US-JNJFOC-20171004642

PATIENT

DRUGS (2)
  1. RISPERIDONE. [Suspect]
     Active Substance: RISPERIDONE
     Indication: SCHIZOAFFECTIVE DISORDER
     Dosage: DOSE RANGE WAS 1-10 MG DAILY WITH AN INITIAL TARGET OF 4 MG ONCE DAILY.
     Route: 065
  2. RISPERIDONE. [Suspect]
     Active Substance: RISPERIDONE
     Indication: SCHIZOPHRENIA
     Dosage: DOSE RANGE WAS 1-10 MG DAILY WITH AN INITIAL TARGET OF 4 MG ONCE DAILY.
     Route: 065

REACTIONS (11)
  - Tardive dyskinesia [Unknown]
  - Cognitive disorder [Unknown]
  - Body mass index decreased [Unknown]
  - Condition aggravated [Unknown]
  - Priapism [Unknown]
  - Neuroleptic malignant syndrome [Unknown]
  - Seizure [Unknown]
  - Drug ineffective [Unknown]
  - Weight increased [Unknown]
  - Lipids increased [Unknown]
  - Respiratory arrest [Fatal]
